FAERS Safety Report 6768777-8 (Version None)
Quarter: 2010Q2

REPORT INFORMATION
  Report Type: 
  Country: None (occurrence: None)
  Receive Date: 20100611
  Receipt Date: 20100528
  Transmission Date: 20101027
  Serious: Yes (Other)
  Sender: FDA-Public Use
  Company Number: 012912

PATIENT
  Age: 18 Year
  Sex: Male

DRUGS (3)
  1. LEVETIRACETAM [Suspect]
  2. RISPERDAL [Concomitant]
  3. VALPROIC ACID [Concomitant]

REACTIONS (3)
  - DEPERSONALISATION [None]
  - EMOTIONAL DISORDER [None]
  - HYPERSOMNIA-BULIMIA SYNDROME [None]
